FAERS Safety Report 6180898-X (Version None)
Quarter: 2009Q2

REPORT INFORMATION
  Report Type: 
  Country: None (occurrence: None)
  Receive Date: 20090506
  Receipt Date: 20090413
  Transmission Date: 20091009
  Serious: No
  Sender: FDA-Public Use
  Company Number: US-BAYER-200911216BCC

PATIENT
  Age: 42 Year
  Sex: Female
  Weight: 64 kg

DRUGS (2)
  1. ALEVE (CAPLET) [Suspect]
     Indication: HEADACHE
     Dosage: UNIT DOSE: 220 MG
     Route: 048
     Dates: start: 20090413
  2. TYLENOL SINUS [Concomitant]
     Indication: DRUG USE FOR UNKNOWN INDICATION
     Dosage: USED ON 13-APR-2009 PRIOR TO USING ALEVE
     Dates: start: 20090413

REACTIONS (2)
  - ERYTHEMA [None]
  - FEELING HOT [None]
